FAERS Safety Report 4509845-0 (Version None)
Quarter: 2004Q4

REPORT INFORMATION
  Report Type: 
  Country: None (occurrence: None)
  Receive Date: 20041119
  Receipt Date: 20041108
  Transmission Date: 20050328
  Serious: Yes (Life-Threatening, Hospitalization)
  Sender: FDA-Public Use
  Company Number: 2004231444DE

PATIENT
  Age: 73 Year
  Sex: Female
  Weight: 91 kg

DRUGS (4)
  1. AROMASIN [Suspect]
     Indication: BREAST CANCER
     Dosage: 25 MG (25 MG, DAILY), ,ORAL
     Route: 048
     Dates: start: 20040811, end: 20040829
  2. ENOXAPARIN SODIUM [Concomitant]
  3. MARCUMAR [Concomitant]
  4. BELOC ZOK (METOPROLOL SUCCINATE) [Concomitant]

REACTIONS (3)
  - DISEASE RECURRENCE [None]
  - PULMONARY EMBOLISM [None]
  - VENA CAVA THROMBOSIS [None]
